FAERS Safety Report 9629204 (Version 3)
Quarter: 2013Q4

REPORT INFORMATION
  Report Type: Spontaneous
  Country: US (occurrence: US)
  Receive Date: 20131017
  Receipt Date: 20131209
  Transmission Date: 20140711
  Serious: No
  Sender: FDA-Public Use
  Company Number: US-PFIZER INC-2013294921

PATIENT
  Age: 61 Year
  Sex: Female
  Weight: 53.52 kg

DRUGS (7)
  1. IBUPROFEN [Suspect]
     Dosage: UNK
  2. INDOMETHACIN [Suspect]
     Dosage: UNK
  3. LEVAQUIN [Suspect]
     Dosage: UNK
  4. BENADRYL [Suspect]
     Dosage: UNK
  5. ACETAMINOPHEN [Suspect]
     Dosage: UNK
  6. ASPIRIN [Suspect]
     Dosage: UNK
  7. BACTRIM [Suspect]
     Dosage: UNK

REACTIONS (1)
  - Drug hypersensitivity [Unknown]
